FAERS Safety Report 5793914-1 (Version None)
Quarter: 2008Q2

REPORT INFORMATION
  Report Type: 
  Country: None (occurrence: None)
  Receive Date: 20080627
  Receipt Date: 20080623
  Transmission Date: 20081010
  Serious: Yes (Other)
  Sender: FDA-Public Use
  Company Number: JP-PFIZER INC-2008045287

PATIENT
  Age: 77 Year
  Sex: Male

DRUGS (2)
  1. ATARAX [Suspect]
     Indication: ANXIETY
     Route: 030
  2. ATROPINE SULFATE [Suspect]
     Route: 030

REACTIONS (1)
  - INJECTION SITE ULCER [None]
